FAERS Safety Report 16510489 (Version 2)
Quarter: 2019Q3

REPORT INFORMATION
  Report Type: Spontaneous
  Country: DE (occurrence: DE)
  Receive Date: 20190702
  Receipt Date: 20190816
  Transmission Date: 20191004
  Serious: Yes (Other)
  Sender: FDA-Public Use
  Company Number: DE-TAKEDA-2019TUS040286

PATIENT
  Age: 28 Year
  Sex: Female

DRUGS (5)
  1. ENTYVIO [Suspect]
     Active Substance: VEDOLIZUMAB
     Indication: CROHN^S DISEASE
     Dosage: UNK
     Route: 065
  2. CORTISONE [Concomitant]
     Active Substance: CORTISONE
     Dosage: 60 MILLIGRAM
  3. CLAVERSAL [Concomitant]
     Active Substance: MESALAMINE
     Dosage: UNK
  4. CALCIUM [Concomitant]
     Active Substance: CALCIUM
     Dosage: UNK
  5. CORTISONE [Concomitant]
     Active Substance: CORTISONE
     Dosage: 7.5 MILLIGRAM

REACTIONS (5)
  - Adverse event [Unknown]
  - Malaise [Unknown]
  - Weight increased [Unknown]
  - Procedural pain [Unknown]
  - Mental disorder [Unknown]
